FAERS Safety Report 9699913 (Version 1)
Quarter: 2013Q4

REPORT INFORMATION
  Report Type: Spontaneous
  Country: US (occurrence: US)
  Receive Date: 20131121
  Receipt Date: 20131121
  Transmission Date: 20140711
  Serious: No
  Sender: FDA-Public Use
  Company Number: US-009507513-1311USA006921

PATIENT
  Sex: Male

DRUGS (1)
  1. NUVARING [Suspect]
     Dosage: UNK

REACTIONS (3)
  - Genital rash [Recovered/Resolved]
  - Penile pain [Recovered/Resolved]
  - Hypersensitivity [Recovered/Resolved]
